FAERS Safety Report 8516463-6 (Version None)
Quarter: 2012Q3

REPORT INFORMATION
  Report Type: 
  Country: None (occurrence: None)
  Receive Date: 20120718
  Receipt Date: 20120713
  Transmission Date: 20120928
  Serious: No
  Sender: FDA-Public Use
  Company Number: US-PFIZER INC-2012169827

PATIENT
  Sex: Female

DRUGS (2)
  1. AMLODIPINE [Suspect]
     Dosage: UNK
  2. LOSARTAN POTASSIUM [Suspect]
     Dosage: UNK

REACTIONS (3)
  - OEDEMA PERIPHERAL [None]
  - DRUG INEFFECTIVE [None]
  - HEADACHE [None]
